FAERS Safety Report 16426665 (Version 2)
Quarter: 2019Q3

REPORT INFORMATION
  Report Type: Spontaneous
  Country: ES (occurrence: ES)
  Receive Date: 20190613
  Receipt Date: 20190729
  Transmission Date: 20191004
  Serious: Yes (Life-Threatening, Hospitalization, Other)
  Sender: FDA-Public Use
  Company Number: PHHY2018ES157102

PATIENT
  Age: 25 Year
  Sex: Male

DRUGS (5)
  1. CLOZAPINE. [Suspect]
     Active Substance: CLOZAPINE
     Indication: PSYCHOTIC DISORDER
     Dosage: 100 MG, UNK
     Route: 065
  2. OLANZAPINE. [Suspect]
     Active Substance: OLANZAPINE
     Indication: ACUTE PSYCHOSIS
     Dosage: 10 MG, QD
     Route: 065
  3. PALIPERIDONE. [Suspect]
     Active Substance: PALIPERIDONE
     Indication: PSYCHOTIC DISORDER
     Dosage: 12 MG, UNK
     Route: 065
  4. ARIPIPRAZOLE. [Suspect]
     Active Substance: ARIPIPRAZOLE
     Indication: DELUSION
     Dosage: 10 MG, QD
     Route: 048
  5. OLANZAPINE. [Suspect]
     Active Substance: OLANZAPINE
     Indication: PSYCHOTIC DISORDER

REACTIONS (12)
  - Sedation complication [Recovering/Resolving]
  - Somnolence [Unknown]
  - Behaviour disorder [Recovering/Resolving]
  - Hallucination, visual [Recovering/Resolving]
  - Neuroleptic malignant syndrome [Recovering/Resolving]
  - Akathisia [Recovered/Resolved]
  - Tremor [Recovering/Resolving]
  - Orthostatic hypotension [Recovering/Resolving]
  - Bradykinesia [Recovering/Resolving]
  - Pallor [Recovering/Resolving]
  - Posture abnormal [Recovering/Resolving]
  - Syncope [Recovering/Resolving]
